FAERS Safety Report 24277929 (Version 4)
Quarter: 2024Q4

REPORT INFORMATION
  Report Type: Report from Study
  Country: CN (occurrence: CN)
  Receive Date: 20240903
  Receipt Date: 20241110
  Transmission Date: 20250114
  Serious: Yes (Hospitalization)
  Sender: ACCORD
  Company Number: CN-HENLIUS-24CN016573

PATIENT
  Age: 52 Year
  Sex: Female
  Weight: 69 kg

DRUGS (16)
  1. TRASTUZUMAB [Suspect]
     Active Substance: TRASTUZUMAB
     Indication: HER2 positive breast cancer
     Dosage: 552 MILLIGRAM, Q3W?STRENGTH: 150 MG, IV DRIP
     Route: 042
     Dates: start: 20230629, end: 20230629
  2. DOCETAXEL [Concomitant]
     Active Substance: DOCETAXEL
     Indication: HER2 positive breast cancer
     Dosage: 133.2 MILLIGRAM, Q3W, IV DRIP
     Route: 042
     Dates: start: 20230629, end: 20230720
  3. CYCLOPHOSPHAMIDE [Concomitant]
     Active Substance: CYCLOPHOSPHAMIDE
     Indication: HER2 positive breast cancer
     Dosage: 1065 MILLIGRAM, Q3W, INTRAVENOUS DRIP
     Route: 042
     Dates: start: 20231018, end: 20231220
  4. DOXORUBICIN [Concomitant]
     Active Substance: DOXORUBICIN
     Indication: HER2 negative breast cancer
     Dosage: 106.5 MILLIGRAM, Q3W, INTRAVENOUS DRIP
     Route: 042
     Dates: start: 20231018, end: 20231108
  5. ENTECAVIR [Concomitant]
     Active Substance: ENTECAVIR
     Indication: Hepatitis B
     Dosage: 0.5 MILLIGRAM, QD
     Route: 048
     Dates: start: 20230618
  6. DOCETAXEL [Concomitant]
     Active Substance: DOCETAXEL
     Indication: HER2 positive breast cancer
     Dosage: 133.2 MILLIGRAM, Q3W, INTRAVENOUS DRIP
     Route: 042
     Dates: start: 20230811, end: 20230811
  7. DOCETAXEL [Concomitant]
     Active Substance: DOCETAXEL
     Indication: HER2 positive breast cancer
     Dosage: 133.2 MILLIGRAM, Q3W, IV DRIP
     Route: 042
     Dates: start: 20230830, end: 20230830
  8. DOXORUBICIN [Concomitant]
     Active Substance: DOXORUBICIN
     Indication: HER2 negative breast cancer
     Dosage: 106.5 MILLIGRAM, Q3W, INTRAVENOUS DRIP
     Route: 042
     Dates: start: 20231130, end: 20231220
  9. TRASTUZUMAB [Suspect]
     Active Substance: TRASTUZUMAB
     Indication: HER2 positive breast cancer
     Dosage: 414 MILLIGRAM, Q3W?STRENGTH: 150 MG, IV DRIP
     Route: 042
     Dates: start: 20230720, end: 20230830
  10. TRASTUZUMAB [Suspect]
     Active Substance: TRASTUZUMAB
     Indication: HER2 positive breast cancer
     Dosage: 414 MILLIGRAM, Q3W?STRENGTH: 150 MG, IV DRIP
     Route: 042
     Dates: start: 20230720, end: 20230830
  11. TRASTUZUMAB [Suspect]
     Active Substance: TRASTUZUMAB
     Indication: HER2 positive breast cancer
     Dosage: 552 MILLIGRAM, Q3W?STRENGTH: 150 MG, IV DRIP
     Route: 042
     Dates: start: 20240112, end: 20240112
  12. TRASTUZUMAB [Suspect]
     Active Substance: TRASTUZUMAB
     Indication: HER2 positive breast cancer
     Dosage: 414 MILLIGRAM, Q3W?STRENGTH: 150 MG, IV DRIP
     Route: 042
     Dates: start: 20240131, end: 20240131
  13. TRASTUZUMAB [Suspect]
     Active Substance: TRASTUZUMAB
     Indication: HER2 positive breast cancer
     Dosage: 414 MILLIGRAM, Q3W?STRENGTH: 150 MG, IV DRIP
     Route: 042
     Dates: start: 20240222, end: 20240518
  14. TRASTUZUMAB [Suspect]
     Active Substance: TRASTUZUMAB
     Indication: HER2 positive breast cancer
     Dosage: 414 MILLIGRAM, Q3W?STRENGTH: 150 MG, IV DRIP
     Route: 042
     Dates: start: 20240607, end: 20240807
  15. TRASTUZUMAB [Suspect]
     Active Substance: TRASTUZUMAB
     Indication: HER2 positive breast cancer
     Dosage: 414 MILLIGRAM, Q3W?STRENGTH: 150 MG, IV DRIP
     Route: 042
     Dates: start: 20240904, end: 20240904
  16. TRASTUZUMAB [Suspect]
     Active Substance: TRASTUZUMAB
     Indication: HER2 positive breast cancer
     Dosage: 414 MILLIGRAM, Q3W?STRENGTH: 150 MG, IV DRIP
     Route: 042
     Dates: start: 20240926, end: 20240926

REACTIONS (1)
  - Pneumonia [Recovered/Resolved]

NARRATIVE: CASE EVENT DATE: 20240813
